FAERS Safety Report 5342193-8 (Version None)
Quarter: 2007Q2

REPORT INFORMATION
  Report Type: 
  Country: None (occurrence: None)
  Receive Date: 20070601
  Receipt Date: 20070529
  Transmission Date: 20071010
  Serious: Yes (Death)
  Sender: FDA-Public Use
  Company Number: D0053429A

PATIENT

DRUGS (3)
  1. QUILONUM RETARD [Suspect]
     Route: 048
  2. RISPERDAL [Suspect]
     Route: 065
  3. APONAL [Suspect]
     Route: 065

REACTIONS (2)
  - DEATH [None]
  - SUICIDE ATTEMPT [None]
